FAERS Safety Report 5569645-X (Version None)
Quarter: 2007Q4

REPORT INFORMATION
  Report Type: 
  Country: None (occurrence: None)
  Receive Date: 20071220
  Receipt Date: 20071219
  Transmission Date: 20080405
  Serious: Yes (Hospitalization)
  Sender: FDA-Public Use
  Company Number: A0699768A

PATIENT
  Age: 58 Year
  Sex: Female

DRUGS (4)
  1. TYKERB [Suspect]
     Indication: BREAST CANCER
     Dosage: 1250MG PER DAY
     Route: 048
     Dates: start: 20070901
  2. POTASSIUM CHLORIDE [Suspect]
     Dosage: 20 PER DAY
     Dates: start: 20071001
  3. XELODA [Concomitant]
  4. SYNTHROID [Concomitant]

REACTIONS (2)
  - DEHYDRATION [None]
  - NEOPLASM MALIGNANT [None]
